FAERS Safety Report 12246183 (Version 2)
Quarter: 2016Q3

REPORT INFORMATION
  Report Type: Report from Study
  Country: US (occurrence: US)
  Receive Date: 20160407
  Receipt Date: 20160729
  Transmission Date: 20161109
  Serious: Yes (Other)
  Sender: FDA-Public Use
  Company Number: US-DSJP-DSU-2016-101871

PATIENT

DRUGS (1)
  1. EDOXABAN [Suspect]
     Active Substance: EDOXABAN TOSYLATE
     Indication: ATRIAL FIBRILLATION
     Dosage: 60 MG, QD
     Dates: start: 2015

REACTIONS (7)
  - Hypoacusis [Unknown]
  - Haemorrhage [Unknown]
  - Stent placement [Unknown]
  - Cardiac failure congestive [Unknown]
  - Dementia Alzheimer^s type [Not Recovered/Not Resolved]
  - Nail injury [Unknown]
  - Decreased appetite [Unknown]
